FAERS Safety Report 19751624 (Version 1)
Quarter: 2021Q3

REPORT INFORMATION
  Report Type: Spontaneous
  Country: CA (occurrence: CA)
  Receive Date: 20210827
  Receipt Date: 20210827
  Transmission Date: 20211014
  Serious: Yes (Other)
  Sender: FDA-Public Use
  Company Number: CA-OCTA-NGAM04221CA

PATIENT
  Age: 85 Year
  Sex: Male

DRUGS (1)
  1. PANZYGA [Suspect]
     Active Substance: HUMAN IMMUNOGLOBULIN G
     Indication: PRODUCT USED FOR UNKNOWN INDICATION
     Route: 042
     Dates: start: 20210720, end: 20210720

REACTIONS (4)
  - Chills [Unknown]
  - Tachycardia [Unknown]
  - Petechiae [Unknown]
  - Hypertension [Unknown]

NARRATIVE: CASE EVENT DATE: 20210720
